FAERS Safety Report 9412027 (Version 1)
Quarter: 2013Q3

REPORT INFORMATION
  Report Type: Report from Study
  Country: US (occurrence: US)
  Receive Date: 20130722
  Receipt Date: 20130722
  Transmission Date: 20140515
  Serious: Yes (Hospitalization)
  Sender: FDA-Public Use
  Company Number: US-009507513-1307USA008706

PATIENT
  Age: 59 Year
  Sex: Male
  Weight: 66.98 kg

DRUGS (10)
  1. PRINIVIL [Suspect]
     Dosage: 25 MG, UNK
  2. TEMSIROLIMUS [Suspect]
     Indication: RENAL CELL CARCINOMA
     Dosage: 25 MG, QW
     Route: 042
     Dates: start: 20000712, end: 20001213
  3. LASIX (FUROSEMIDE) [Suspect]
     Dosage: UNK
     Route: 048
     Dates: start: 20001113
  4. COLACE [Concomitant]
     Dosage: UNK
     Dates: start: 199910
  5. FENTANYL [Concomitant]
     Dosage: UNK
     Dates: start: 20000628
  6. IBUPROFEN [Concomitant]
     Dosage: UNK
     Dates: start: 199910
  7. PERCOCET [Concomitant]
     Dosage: OXYCODONE TEREPHTHALATE
     Dates: start: 199910
  8. K-DUR [Concomitant]
     Dosage: UNK
     Dates: start: 20001113
  9. SENOKOT (SENNA) [Concomitant]
     Dosage: UNK
     Dates: start: 199910
  10. INSULIN [Concomitant]
     Dosage: UNK
     Dates: start: 199910

REACTIONS (1)
  - Renal impairment [Recovered/Resolved]
